FAERS Safety Report 8382928-3 (Version None)
Quarter: 2012Q2

REPORT INFORMATION
  Report Type: 
  Country: None (occurrence: None)
  Receive Date: 20120524
  Receipt Date: 20120518
  Transmission Date: 20120825
  Serious: Yes (Death)
  Sender: FDA-Public Use
  Company Number: IT-PFIZER INC-2006136232

PATIENT
  Age: 85 Year
  Sex: Female

DRUGS (4)
  1. NEURONTIN [Suspect]
     Indication: DIABETIC NEUROPATHY
     Route: 048
     Dates: start: 20061005, end: 20061009
  2. ASPIRIN [Concomitant]
     Indication: THROMBOSIS PROPHYLAXIS
     Route: 048
  3. HUMALOG [Concomitant]
     Route: 058
  4. DILTIAZEM [Concomitant]
     Route: 048

REACTIONS (2)
  - RHABDOMYOLYSIS [None]
  - RENAL FAILURE ACUTE [None]
